FAERS Safety Report 14048575 (Version 1)
Quarter: 2017Q4

REPORT INFORMATION
  Report Type: Spontaneous
  Country: GB (occurrence: GB)
  Receive Date: 20171005
  Receipt Date: 20171005
  Transmission Date: 20180321
  Serious: Yes (Disabling, Congenital Anomaly)
  Sender: FDA-Public Use
  Company Number: GB-ABBVIE-17P-167-2120915-00

PATIENT
  Sex: Male

DRUGS (1)
  1. EPILIM [Suspect]
     Active Substance: VALPROATE SODIUM
     Indication: MATERNAL EXPOSURE TIMING UNSPECIFIED
     Route: 064

REACTIONS (8)
  - Disability [Unknown]
  - Eye disorder [Unknown]
  - Limb deformity [Unknown]
  - Balance disorder [Unknown]
  - Learning disorder [Unknown]
  - Foetal exposure during pregnancy [Unknown]
  - Coordination abnormal [Unknown]
  - Gait disturbance [Unknown]
